FAERS Safety Report 5494042-5 (Version None)
Quarter: 2007Q4

REPORT INFORMATION
  Report Type: 
  Country: None (occurrence: None)
  Receive Date: 20071023
  Receipt Date: 20071011
  Transmission Date: 20080405
  Serious: Yes (Other)
  Sender: FDA-Public Use
  Company Number: US-PFIZER INC-2007086420

PATIENT
  Sex: Male
  Weight: 85.7 kg

DRUGS (3)
  1. EXUBERA [Suspect]
     Indication: TYPE 1 DIABETES MELLITUS
     Dosage: TEXT:EVERY DAY
     Route: 055
  2. SYNTHROID [Concomitant]
  3. LANTUS [Concomitant]

REACTIONS (3)
  - BLOOD GLUCOSE INCREASED [None]
  - CONVULSION [None]
  - LOSS OF CONSCIOUSNESS [None]
